FAERS Safety Report 7230224-X (Version None)
Quarter: 2011Q1

REPORT INFORMATION
  Report Type: 
  Country: None (occurrence: None)
  Receive Date: 20110118
  Receipt Date: 20110111
  Transmission Date: 20110831
  Serious: Yes (Hospitalization)
  Sender: FDA-Public Use
  Company Number: JP-BAYER-200914958BYL

PATIENT
  Sex: Male
  Weight: 71 kg

DRUGS (7)
  1. HEPAN ED [Concomitant]
     Indication: HEPATIC FAILURE
     Dosage: 2 DF, QD
     Route: 048
     Dates: start: 20090925
  2. NEXAVAR [Suspect]
     Indication: HEPATIC NEOPLASM MALIGNANT
     Route: 048
     Dates: start: 20091001, end: 20091105
  3. MONILAC [Concomitant]
     Indication: HEPATIC ENCEPHALOPATHY
     Dosage: 30 ML, QD
     Route: 048
     Dates: start: 20090925, end: 20091013
  4. MONILAC [Concomitant]
     Dosage: 30 DF, QD
     Dates: start: 20091106
  5. OLMETEC [Concomitant]
     Dosage: 10 MG, QD
     Route: 048
  6. URSO 250 [Concomitant]
     Dosage: 300 MG, QD
     Route: 048
  7. KERATINAMIN [Concomitant]
     Indication: PROPHYLAXIS
     Dosage: UNK
     Route: 061
     Dates: start: 20090929, end: 20091101

REACTIONS (1)
  - HEPATIC ENCEPHALOPATHY [None]
